FAERS Safety Report 17901133 (Version 1)
Quarter: 2020Q2

REPORT INFORMATION
  Report Type: Spontaneous
  Country: US (occurrence: US)
  Receive Date: 20200616
  Receipt Date: 20200616
  Transmission Date: 20200714
  Serious: Yes (Hospitalization)
  Sender: FDA-Public Use
  Company Number: US-TETRAPHASE PHARMACEUTICALS, INC.-2020TP000008

PATIENT
  Age: 59 Year
  Sex: Male

DRUGS (1)
  1. XERAVA [Suspect]
     Active Substance: ERAVACYCLINE DIHYDROCHLORIDE
     Indication: BACTERIAL INFECTION
     Route: 042

REACTIONS (4)
  - Inflammatory marker increased [Unknown]
  - Myopathy [Unknown]
  - Oedema peripheral [Unknown]
  - Off label use [Recovered/Resolved]
